FAERS Safety Report 7002077-6 (Version None)
Quarter: 2010Q3

REPORT INFORMATION
  Report Type: 
  Country: None (occurrence: None)
  Receive Date: 20100920
  Receipt Date: 20100527
  Transmission Date: 20110219
  Serious: Yes (Other)
  Sender: FDA-Public Use
  Company Number: US-ASTRAZENECA-2009UW20012

PATIENT
  Sex: Male

DRUGS (4)
  1. SEROQUEL [Suspect]
     Route: 048
     Dates: start: 20060606
  2. PAROXETINE HCL [Concomitant]
     Dates: start: 20060605
  3. ZOCOR [Concomitant]
     Dates: start: 20060605
  4. ZYPREXA [Concomitant]
     Dates: start: 20060605

REACTIONS (3)
  - DIABETES MELLITUS [None]
  - KETOACIDOSIS [None]
  - PANCREATITIS [None]
